FAERS Safety Report 6293159-5 (Version None)
Quarter: 2009Q3

REPORT INFORMATION
  Report Type: 
  Country: None (occurrence: None)
  Receive Date: 20090731
  Receipt Date: 20090729
  Transmission Date: 20100115
  Serious: Yes (Death)
  Sender: FDA-Public Use
  Company Number: US-SANOFI-SYNTHELABO-F01200900726

PATIENT
  Sex: Male

DRUGS (8)
  1. PERCOCET [Concomitant]
     Dates: start: 20090521, end: 20090714
  2. ACIPHEX [Concomitant]
     Dates: start: 20090521, end: 20090714
  3. NORVASC [Concomitant]
     Dates: start: 20090521, end: 20090714
  4. BENICAR HCT [Concomitant]
     Dates: start: 20090521, end: 20090714
  5. AMBIEN [Concomitant]
     Dates: start: 20090707, end: 20090714
  6. XELODA [Suspect]
     Route: 048
  7. BEVACIZUMAB [Suspect]
     Dosage: 1395 MG
     Route: 042
  8. OXALIPLATIN [Suspect]
     Indication: ADENOCARCINOMA
     Dosage: 276 MG
     Route: 042

REACTIONS (1)
  - HEPATIC FAILURE [None]
